FAERS Safety Report 9068840 (Version 2)
Quarter: 2013Q2

REPORT INFORMATION
  Report Type: Spontaneous
  Country: US (occurrence: US)
  Receive Date: 20130215
  Receipt Date: 20130403
  Transmission Date: 20140414
  Serious: Yes (Hospitalization, Other)
  Sender: FDA-Public Use
  Company Number: US-PFIZER INC-2013058647

PATIENT
  Age: 12 Year
  Sex: Male
  Weight: 56 kg

DRUGS (6)
  1. GENOTROPIN [Suspect]
     Indication: HYPOPITUITARISM
     Dosage: 1 MG, 1X/DAY
     Dates: start: 200803
  2. GENOTROPIN [Suspect]
     Dosage: 1 MG, (CONTINUOUS FOR APPROX. 5 YEARS)
     Route: 058
     Dates: start: 200804, end: 201302
  3. DDAVP [Concomitant]
     Indication: DIABETES INSIPIDUS
     Dosage: 0.1 MG, 2X/DAY
     Route: 048
     Dates: start: 20080211
  4. LEVOTHYROXINE [Concomitant]
     Indication: HYPOTHYROIDISM
     Dosage: 0.075 MG, 1X/DAY (DAILY)
     Route: 048
     Dates: start: 201110
  5. KEPPRA [Concomitant]
     Dosage: 750 MG, 2X/DAY
     Route: 048
  6. SYNTHROID [Concomitant]
     Dosage: 0.075 MG, 1X/DAY (DAILY)
     Route: 048

REACTIONS (1)
  - Germ cell cancer [Not Recovered/Not Resolved]
